FAERS Safety Report 19269361 (Version 2)
Quarter: 2021Q2

REPORT INFORMATION
  Report Type: Report from Study
  Country: None (occurrence: US)
  Receive Date: 20210517
  Receipt Date: 20210609
  Transmission Date: 20210717
  Serious: Yes (Other)
  Sender: FDA-Public Use
  Company Number: US-ABBVIE-20K-163-3709327-00

PATIENT
  Age: 48 Year
  Sex: Female
  Weight: 85.35 kg

DRUGS (9)
  1. LEFUMIDE [Concomitant]
     Indication: RHEUMATOID ARTHRITIS
  2. ESTROGEN [Concomitant]
     Active Substance: ESTROGENS
     Indication: HORMONE REPLACEMENT THERAPY
  3. RINVOQ [Suspect]
     Active Substance: UPADACITINIB
     Indication: RHEUMATOID ARTHRITIS
     Dosage: OCT OR NOV 2020
     Route: 048
     Dates: start: 2020, end: 202002
  4. PREDNISONE. [Concomitant]
     Active Substance: PREDNISONE
     Indication: RHEUMATOID ARTHRITIS
  5. VITAMIN B12 [Concomitant]
     Active Substance: CYANOCOBALAMIN
     Indication: SUPPLEMENTATION THERAPY
  6. RINVOQ [Suspect]
     Active Substance: UPADACITINIB
     Route: 048
     Dates: start: 20200329
  7. ZINC. [Concomitant]
     Active Substance: ZINC
     Indication: SUPPLEMENTATION THERAPY
  8. SYNTHROID [Concomitant]
     Active Substance: LEVOTHYROXINE SODIUM
     Indication: AUTOIMMUNE THYROIDITIS
  9. VITAMIN D [Concomitant]
     Active Substance: VITAMIN D NOS
     Indication: SUPPLEMENTATION THERAPY

REACTIONS (15)
  - Ear infection [Recovered/Resolved]
  - Low density lipoprotein increased [Recovered/Resolved]
  - Sinusitis [Recovered/Resolved]
  - Blood cholesterol increased [Unknown]
  - Gastric infection [Recovered/Resolved]
  - Red blood cell sedimentation rate increased [Unknown]
  - Sinusitis [Unknown]
  - Headache [Recovered/Resolved]
  - Temporomandibular joint syndrome [Recovered/Resolved]
  - Illness [Unknown]
  - Insomnia [Recovered/Resolved]
  - Bronchitis [Unknown]
  - Ear discomfort [Recovered/Resolved]
  - High density lipoprotein increased [Recovering/Resolving]
  - Blood cholesterol increased [Recovered/Resolved]

NARRATIVE: CASE EVENT DATE: 2020
